FAERS Safety Report 18738769 (Version 8)
Quarter: 2021Q1

REPORT INFORMATION
  Report Type: Report from Study
  Country: BR (occurrence: BR)
  Receive Date: 20210114
  Receipt Date: 20210213
  Transmission Date: 20210419
  Serious: Yes (Death)
  Sender: FDA-Public Use
  Company Number: BR-ROCHE-2746896

PATIENT
  Age: 52 Year
  Sex: Male
  Weight: 107 kg

DRUGS (61)
  1. OXYGEN. [Concomitant]
     Active Substance: OXYGEN
     Route: 007
     Dates: start: 20210104
  2. OXYGEN. [Concomitant]
     Active Substance: OXYGEN
     Route: 007
     Dates: start: 20210106
  3. TOCILIZUMAB. [Suspect]
     Active Substance: TOCILIZUMAB
     Indication: COVID-19 PNEUMONIA
     Dosage: DATE OF MOST RECENT DOSE OF STUDY DRUG PRIOR TO SERIOUS ADVERSE EVENT 23?DEC?2020 FROM 7:25 PM TO 8:
     Route: 042
     Dates: start: 20201223
  4. OXYGEN. [Concomitant]
     Active Substance: OXYGEN
     Dosage: 07?JAN?2021,27?DEC?2020, 08?JAN?2021, 08?JAN?2021, 07?JAN?2021
     Route: 007
     Dates: start: 20210108
  5. OXYGEN. [Concomitant]
     Active Substance: OXYGEN
     Route: 007
     Dates: start: 20201223
  6. OXYGEN. [Concomitant]
     Active Substance: OXYGEN
     Route: 007
     Dates: start: 20210107
  7. OXYGEN. [Concomitant]
     Active Substance: OXYGEN
     Route: 007
     Dates: start: 20201231
  8. ROCURONIUM [Concomitant]
     Active Substance: ROCURONIUM BROMIDE
     Indication: SEDATION
     Dates: start: 20201224, end: 20210105
  9. MINERAL OIL. [Concomitant]
     Active Substance: MINERAL OIL
     Indication: CONSTIPATION
     Dates: start: 20201228, end: 20210108
  10. CALCIUM GLUCONATE. [Concomitant]
     Active Substance: CALCIUM GLUCONATE
     Dates: start: 20201229, end: 20210101
  11. TAZOCIN [Concomitant]
     Active Substance: PIPERACILLIN SODIUM\TAZOBACTAM SODIUM
     Indication: ANTIBIOTIC THERAPY
     Dates: start: 20210105, end: 20210106
  12. NORADRENALINE [Concomitant]
     Active Substance: NOREPINEPHRINE
     Dosage: 4 AMPULE
     Dates: start: 20210104, end: 20210105
  13. POLYMYXIN B. [Concomitant]
     Active Substance: POLYMYXIN B
     Indication: ANTIBIOTIC THERAPY
     Dosage: 3 AMPULE
     Dates: start: 20210107, end: 20210108
  14. OXYGEN. [Concomitant]
     Active Substance: OXYGEN
     Route: 007
     Dates: start: 20201228
  15. OXYGEN. [Concomitant]
     Active Substance: OXYGEN
     Route: 007
     Dates: start: 20201224
  16. OXYGEN. [Concomitant]
     Active Substance: OXYGEN
     Route: 007
     Dates: start: 20210105
  17. SALBUTAMOL [Concomitant]
     Active Substance: ALBUTEROL
     Indication: COVID-19 PNEUMONIA
     Dates: start: 20201219, end: 20210108
  18. MIDAZOLAM. [Concomitant]
     Active Substance: MIDAZOLAM
     Indication: SEDATION
     Dates: start: 20201221, end: 20210108
  19. LACTULOSE. [Concomitant]
     Active Substance: LACTULOSE
     Dates: start: 20201222, end: 20210108
  20. SUXAMETONIO [Concomitant]
     Indication: SEDATION
     Dates: start: 20201221, end: 20201222
  21. DIAZEPAM. [Concomitant]
     Active Substance: DIAZEPAM
     Indication: SEDATION
     Dates: start: 20201225, end: 20201231
  22. SODIUM BICARBONATE. [Concomitant]
     Active Substance: SODIUM BICARBONATE
     Indication: RENAL FAILURE
     Dates: start: 20201230, end: 20201231
  23. NORADRENALINE [Concomitant]
     Active Substance: NOREPINEPHRINE
     Dosage: 4 AMPULE
     Dates: start: 20210107, end: 20210108
  24. OXYGEN. [Concomitant]
     Active Substance: OXYGEN
     Route: 007
     Dates: start: 20201227
  25. OXYGEN. [Concomitant]
     Active Substance: OXYGEN
     Route: 007
     Dates: start: 20201223
  26. OXYGEN. [Concomitant]
     Active Substance: OXYGEN
     Route: 007
     Dates: start: 20210105
  27. AZITHROMYCIN ANHYDROUS. [Concomitant]
     Active Substance: AZITHROMYCIN ANHYDROUS
     Indication: COVID-19 PNEUMONIA
     Dates: start: 20201219, end: 20201223
  28. PROPOFOL. [Concomitant]
     Active Substance: PROPOFOL
     Dates: start: 20201222, end: 20210108
  29. BROMOPRIDE [Concomitant]
     Active Substance: BROMOPRIDE
     Indication: GASTROINTESTINAL DISORDER PROPHYLAXIS
     Dates: start: 20201219, end: 20210108
  30. REMDESIVIR. [Suspect]
     Active Substance: REMDESIVIR
     Indication: COVID-19 PNEUMONIA
     Dosage: DATE OF MOST RECENT DOSE OF STUDY DRUG PRIOR TO SERIOUS ADVERSE EVENT 30?DEC?2020 12:23 PM TO 1:25 P
     Route: 042
     Dates: start: 20201223
  31. OXYGEN. [Concomitant]
     Active Substance: OXYGEN
     Route: 007
     Dates: start: 20210104
  32. OXYGEN. [Concomitant]
     Active Substance: OXYGEN
     Dosage: 24?DEC?2020, 25?DEC?2020
     Route: 007
     Dates: start: 20201225
  33. OXYGEN. [Concomitant]
     Active Substance: OXYGEN
     Route: 007
     Dates: start: 20210103
  34. OXYGEN. [Concomitant]
     Active Substance: OXYGEN
     Route: 007
     Dates: start: 20201229
  35. ENOXAPARIN [Concomitant]
     Active Substance: ENOXAPARIN
     Indication: COVID-19 PNEUMONIA
     Dates: start: 20201219, end: 20201231
  36. HYDRALAZINE [Concomitant]
     Active Substance: HYDRALAZINE HYDROCHLORIDE
     Dates: start: 20201219, end: 20210108
  37. FUROSEMIDE. [Concomitant]
     Active Substance: FUROSEMIDE
     Dates: start: 20201223, end: 20201225
  38. FUROSEMIDE. [Concomitant]
     Active Substance: FUROSEMIDE
     Dates: start: 20210102, end: 20210108
  39. LIDOCAINE. [Concomitant]
     Active Substance: LIDOCAINE
     Indication: SEDATION
     Dates: start: 20201221, end: 20201221
  40. QUETIAPINE. [Concomitant]
     Active Substance: QUETIAPINE
     Indication: SEDATION
     Dates: start: 20201225, end: 20210108
  41. DEXTRAN;HYPROMELLOSE [Concomitant]
     Indication: DRY EYE
     Dates: start: 20210101, end: 20210104
  42. CISATRACURIUM. [Concomitant]
     Active Substance: CISATRACURIUM
     Indication: SEDATION
     Dosage: 2 AMPULE
     Dates: start: 20210105, end: 20210106
  43. OXYGEN. [Concomitant]
     Active Substance: OXYGEN
     Route: 007
     Dates: start: 20201223
  44. OXYGEN. [Concomitant]
     Active Substance: OXYGEN
     Route: 007
     Dates: start: 20201227
  45. OXYGEN. [Concomitant]
     Active Substance: OXYGEN
     Route: 007
     Dates: start: 20201226
  46. OXYGEN. [Concomitant]
     Active Substance: OXYGEN
     Route: 007
     Dates: start: 20210106
  47. CEFTRIAXONE. [Concomitant]
     Active Substance: CEFTRIAXONE
     Indication: COVID-19 PNEUMONIA
     Dates: start: 20201219, end: 20201225
  48. OXYGEN. [Concomitant]
     Active Substance: OXYGEN
     Dosage: 23?DEC?2020, 23?DEC?2020
     Route: 007
     Dates: start: 20201226
  49. OXYGEN. [Concomitant]
     Active Substance: OXYGEN
     Route: 007
     Dates: start: 20201228
  50. DEXAMETHASONE. [Concomitant]
     Active Substance: DEXAMETHASONE
     Indication: COVID-19 PNEUMONIA
     Dates: start: 20201219, end: 20210108
  51. AMIKACIN. [Concomitant]
     Active Substance: AMIKACIN
     Indication: ANTIBIOTIC THERAPY
     Dates: start: 20210107, end: 20210108
  52. OXYGEN. [Concomitant]
     Active Substance: OXYGEN
     Route: 007
     Dates: start: 20201229
  53. OXYGEN. [Concomitant]
     Active Substance: OXYGEN
     Route: 007
     Dates: start: 20210102
  54. OXYGEN. [Concomitant]
     Active Substance: OXYGEN
     Route: 007
     Dates: start: 20201224
  55. FENTANYL. [Concomitant]
     Active Substance: FENTANYL
     Indication: SEDATION
     Dates: start: 20201221, end: 20210108
  56. CISATRACURIO [Concomitant]
     Indication: SEDATION
     Dates: start: 20201222, end: 20201223
  57. AMLODIPINE [Concomitant]
     Active Substance: AMLODIPINE BESYLATE
     Dates: start: 20201219, end: 20210108
  58. OMEPRAZOLE. [Concomitant]
     Active Substance: OMEPRAZOLE
     Indication: GASTROINTESTINAL DISORDER PROPHYLAXIS
     Dates: start: 20201219, end: 20210108
  59. KETAMINE [Concomitant]
     Active Substance: KETAMINE
     Indication: SEDATION
     Dates: start: 20201228, end: 20210108
  60. HEPARIN [Concomitant]
     Active Substance: HEPARIN SODIUM
     Indication: DEEP VEIN THROMBOSIS
     Dosage: 1 AMPULE
     Dates: start: 20201231, end: 20210108
  61. NOREPINEPHRINE. [Concomitant]
     Active Substance: NOREPINEPHRINE
     Dosage: 4 AMPULE
     Dates: start: 20210107, end: 20210108

REACTIONS (1)
  - Sepsis [Fatal]

NARRATIVE: CASE EVENT DATE: 20210105
